FAERS Safety Report 5446409-9 (Version None)
Quarter: 2007Q3

REPORT INFORMATION
  Report Type: 
  Country: None (occurrence: None)
  Receive Date: 20070907
  Receipt Date: 20070830
  Transmission Date: 20080115
  Serious: Yes (Other)
  Sender: FDA-Public Use
  Company Number: US-MERCK-0708USA03033

PATIENT
  Age: 69 Year
  Sex: Male

DRUGS (10)
  1. DECADRON [Suspect]
     Indication: MULTIPLE MYELOMA
     Route: 048
     Dates: start: 20070514
  2. DECADRON [Suspect]
     Route: 048
     Dates: start: 20070522
  3. REVLIMID [Concomitant]
     Indication: MULTIPLE MYELOMA
     Route: 048
     Dates: start: 20070514
  4. COUMADIN [Concomitant]
     Route: 065
  5. LYRICA [Concomitant]
     Route: 065
  6. FLOMAX [Concomitant]
     Route: 065
  7. HYDROCODONE BITARTRATE [Concomitant]
     Route: 065
  8. PREGABALIN [Concomitant]
     Route: 065
  9. TAMSULOSIN HYDROCHLORIDE [Concomitant]
     Route: 065
  10. ZOMETA [Concomitant]
     Route: 065

REACTIONS (2)
  - ACCIDENTAL OVERDOSE [None]
  - RECTAL HAEMORRHAGE [None]
